FAERS Safety Report 25445353 (Version 1)
Quarter: 2025Q2

REPORT INFORMATION
  Report Type: Spontaneous
  Country: US (occurrence: US)
  Receive Date: 20250617
  Receipt Date: 20250617
  Transmission Date: 20250717
  Serious: No
  Sender: CURIUM PHARMACEUTICALS
  Company Number: US-CURIUM-2025000384

PATIENT
  Age: 61 Year
  Sex: Female

DRUGS (4)
  1. IOFLUPANE I-123 [Suspect]
     Active Substance: IOFLUPANE I-123
     Indication: Dopamine transporter scintigraphy
     Route: 051
     Dates: start: 20250519, end: 20250519
  2. AMOXAPINE [Interacting]
     Active Substance: AMOXAPINE
     Indication: Product used for unknown indication
     Route: 065
  3. SERTRALINE [Concomitant]
     Active Substance: SERTRALINE HYDROCHLORIDE
     Indication: Product used for unknown indication
     Route: 065
  4. VENLAFAXINE [Concomitant]
     Active Substance: VENLAFAXINE HYDROCHLORIDE
     Indication: Product used for unknown indication
     Route: 065

REACTIONS (2)
  - Dopamine transporter scintigraphy abnormal [Recovered/Resolved]
  - Labelled drug-drug interaction issue [Recovered/Resolved]

NARRATIVE: CASE EVENT DATE: 20250519
